FAERS Safety Report 9527360 (Version 1)
Quarter: 2013Q3

REPORT INFORMATION
  Report Type: Spontaneous
  Country: US (occurrence: US)
  Receive Date: 20130917
  Receipt Date: 20130917
  Transmission Date: 20140515
  Serious: No
  Sender: FDA-Public Use
  Company Number: US-BIOGENIDEC-2013BI085644

PATIENT
  Sex: Female

DRUGS (1)
  1. TYSABRI [Suspect]
     Indication: MULTIPLE SCLEROSIS
     Route: 042
     Dates: start: 20070724

REACTIONS (8)
  - Hypersomnia [Recovered/Resolved]
  - Contusion [Recovered/Resolved]
  - Adrenal insufficiency [Unknown]
  - Inappropriate schedule of drug administration [Recovered/Resolved]
  - Fatigue [Recovered/Resolved]
  - Malaise [Recovered/Resolved]
  - Rash erythematous [Recovered/Resolved]
  - Drug ineffective [Recovered/Resolved]
